FAERS Safety Report 8447760-0 (Version None)
Quarter: 2012Q2

REPORT INFORMATION
  Report Type: 
  Country: None (occurrence: None)
  Receive Date: 20120619
  Receipt Date: 20120614
  Transmission Date: 20120825
  Serious: No
  Sender: FDA-Public Use
  Company Number: US-BAYER-2012-053920

PATIENT
  Age: 41 Year
  Sex: Female
  Weight: 56.689 kg

DRUGS (1)
  1. MIRENA [Suspect]
     Indication: CONTRACEPTION
     Dosage: 20 ?G/D, CONT
     Route: 015
     Dates: start: 20120530, end: 20120530

REACTIONS (2)
  - PROCEDURAL PAIN [None]
  - DEVICE DEPLOYMENT ISSUE [None]
